FAERS Safety Report 5129062-3 (Version None)
Quarter: 2006Q4

REPORT INFORMATION
  Report Type: 
  Country: None (occurrence: None)
  Receive Date: 20061011
  Receipt Date: 20060927
  Transmission Date: 20070319
  Serious: Yes (Hospitalization)
  Sender: FDA-Public Use
  Company Number: 2006PV020562

PATIENT
  Age: 66 Year
  Sex: Male
  Weight: 114.3065 kg

DRUGS (17)
  1. BYETTA [Suspect]
     Indication: DIABETES MELLITUS NON-INSULIN-DEPENDENT
     Dosage: SEE IMAGE
     Route: 058
     Dates: start: 20060308, end: 20060407
  2. BYETTA [Suspect]
     Indication: DIABETES MELLITUS NON-INSULIN-DEPENDENT
     Dosage: SEE IMAGE
     Route: 058
     Dates: start: 20060408
  3. GLUCOVANCE [Concomitant]
  4. GLUCOVANCE [Concomitant]
  5. ASPIRIN [Concomitant]
  6. FLOMAX [Concomitant]
  7. WARFARIN SODIUM [Concomitant]
  8. LIPITOR [Concomitant]
  9. FUROSEMIDE [Concomitant]
  10. CHOLOR CON [Concomitant]
  11. LEXAPRO [Concomitant]
  12. CHROMAGEN [Concomitant]
  13. SYNTHROID [Concomitant]
  14. VERAPAMIL [Concomitant]
  15. FOLTX [Concomitant]
  16. ASCORBIC ACID [Concomitant]
  17. FOLIC ACID [Concomitant]

REACTIONS (6)
  - ATRIAL FIBRILLATION [None]
  - BLOOD GLUCOSE DECREASED [None]
  - COLD SWEAT [None]
  - HEART RATE INCREASED [None]
  - URINARY TRACT OBSTRUCTION [None]
  - WEIGHT DECREASED [None]
